FAERS Safety Report 14679971 (Version 1)
Quarter: 2018Q1

REPORT INFORMATION
  Report Type: Spontaneous
  Country: US (occurrence: US)
  Receive Date: 20180326
  Receipt Date: 20180326
  Transmission Date: 20180509
  Serious: Yes (Other)
  Sender: FDA-Public Use
  Company Number: US-MYLANLABS-2018M1017075

PATIENT
  Age: 66 Year
  Sex: Female
  Weight: 74.83 kg

DRUGS (3)
  1. CROMOLYN SODIUM. [Concomitant]
     Active Substance: CROMOLYN SODIUM
     Indication: PRODUCT USED FOR UNKNOWN INDICATION
     Dosage: UNK
     Dates: start: 2017
  2. GASTROCROM [Suspect]
     Active Substance: CROMOLYN SODIUM
     Indication: MAST CELL ACTIVATION SYNDROME
     Dosage: UNK
     Route: 048
     Dates: start: 201702
  3. VITAMIN D [Concomitant]
     Active Substance: CHOLECALCIFEROL
     Indication: PRODUCT USED FOR UNKNOWN INDICATION
     Dosage: UNK

REACTIONS (7)
  - Oesophagitis [Recovered/Resolved]
  - Drug ineffective [Recovered/Resolved]
  - Gastritis [Recovered/Resolved]
  - Mesenteritis [Recovered/Resolved]
  - Gastrointestinal injury [Recovered/Resolved]
  - Bronchiolitis [Recovered/Resolved]
  - Ocular rosacea [Recovered/Resolved]

NARRATIVE: CASE EVENT DATE: 201802
